FAERS Safety Report 21928585 (Version 4)
Quarter: 2023Q1

REPORT INFORMATION
  Report Type: Spontaneous
  Country: US (occurrence: US)
  Receive Date: 20230130
  Receipt Date: 20230216
  Transmission Date: 20230418
  Serious: No
  Sender: FDA-Public Use
  Company Number: US-UNITED THERAPEUTICS-UNT-2023-000566

PATIENT
  Age: 38 Year
  Sex: Male
  Weight: 146.94 kg

DRUGS (5)
  1. REMODULIN [Suspect]
     Active Substance: TREPROSTINIL
     Indication: Pulmonary arterial hypertension
     Dosage: 0.047 ?G/KG (SELF-FILL WITH 3 ML/CASSETTE AT A PUMP RATE OF 41 MCL/HOUR), CONTINUING
     Route: 058
  2. REMODULIN [Suspect]
     Active Substance: TREPROSTINIL
     Dosage: 0.045 ?G/KG, CONTINUING (SELF-FILL CASSETTE WITH 3 ML; AT A PUMP RATE OF 39 MCL/HOUR)
     Route: 058
  3. REMODULIN [Suspect]
     Active Substance: TREPROSTINIL
     Dosage: UNK, CONTINUING
     Route: 058
     Dates: start: 20230102
  4. AMBRISENTAN [Concomitant]
     Active Substance: AMBRISENTAN
     Indication: Product used for unknown indication
     Dosage: UNK
     Route: 065
  5. ADEMPAS [Concomitant]
     Active Substance: RIOCIGUAT
     Indication: Product used for unknown indication
     Dosage: UNK
     Route: 065

REACTIONS (11)
  - Infusion site warmth [Unknown]
  - Infusion site pain [Unknown]
  - Infusion site erythema [Unknown]
  - Infusion site discharge [Unknown]
  - Purulent discharge [Unknown]
  - Infusion site swelling [Unknown]
  - Insomnia [Unknown]
  - Infusion site infection [Unknown]
  - Product administration interrupted [Unknown]
  - Pain [Recovering/Resolving]
  - Infusion site induration [Unknown]

NARRATIVE: CASE EVENT DATE: 20230101
